FAERS Safety Report 9510000 (Version 1)
Quarter: 2013Q3

REPORT INFORMATION
  Report Type: Spontaneous
  Country: US (occurrence: US)
  Receive Date: 20130909
  Receipt Date: 20130909
  Transmission Date: 20140515
  Serious: No
  Sender: FDA-Public Use
  Company Number: US-BRISTOL-MYERS SQUIBB COMPANY-18872275

PATIENT
  Age: 16 Year
  Sex: Male
  Weight: 63.49 kg

DRUGS (1)
  1. ABILIFY [Suspect]
     Indication: BIPOLAR DISORDER
     Dosage: AT BEDTIME?LAST DOSE-15APR13
     Dates: start: 20130408, end: 20130415

REACTIONS (3)
  - Somnolence [Recovered/Resolved]
  - Lethargy [Unknown]
  - Abnormal behaviour [Unknown]
